FAERS Safety Report 13850502 (Version 3)
Quarter: 2017Q4

REPORT INFORMATION
  Report Type: Spontaneous
  Country: US (occurrence: US)
  Receive Date: 20170809
  Receipt Date: 20171124
  Transmission Date: 20180320
  Serious: No
  Sender: FDA-Public Use
  Company Number: PHEH2017US024609

PATIENT
  Age: 57 Year
  Sex: Female
  Weight: 97.51 kg

DRUGS (4)
  1. BACLOFEN. [Concomitant]
     Active Substance: BACLOFEN
     Indication: MUSCLE SPASMS
     Dosage: UNK
     Route: 065
  2. GLATOPA [Suspect]
     Active Substance: GLATIRAMER ACETATE
     Indication: PRODUCT USED FOR UNKNOWN INDICATION
     Dosage: 1 DF (20MG), QD
     Route: 058
     Dates: start: 201611
  3. AMBIEN [Concomitant]
     Active Substance: ZOLPIDEM TARTRATE
     Indication: INSOMNIA
     Dosage: UNK
     Route: 065
  4. OXYCODONE [Concomitant]
     Active Substance: OXYCODONE
     Indication: PAIN
     Dosage: UNK
     Route: 065

REACTIONS (19)
  - Diarrhoea [Recovering/Resolving]
  - Injection site reaction [Recovering/Resolving]
  - Anxiety [Recovering/Resolving]
  - Head discomfort [Recovering/Resolving]
  - Palpitations [Recovering/Resolving]
  - Pelvic pain [Recovering/Resolving]
  - Abdominal pain [Recovering/Resolving]
  - Chest pain [Recovering/Resolving]
  - Syringe issue [Unknown]
  - Body temperature increased [Recovering/Resolving]
  - Arthralgia [Recovering/Resolving]
  - Myalgia [Recovering/Resolving]
  - Back pain [Recovering/Resolving]
  - Injection site haemorrhage [Recovering/Resolving]
  - Fatigue [Recovering/Resolving]
  - Flushing [Recovering/Resolving]
  - Bone pain [Recovering/Resolving]
  - Vision blurred [Recovering/Resolving]
  - Device malfunction [Unknown]
